FAERS Safety Report 25377008 (Version 1)
Quarter: 2025Q2

REPORT INFORMATION
  Report Type: Spontaneous
  Country: US (occurrence: US)
  Receive Date: 20250530
  Receipt Date: 20250530
  Transmission Date: 20250716
  Serious: No
  Sender: RECKITT BENCKISER
  Company Number: US-PROD-AS2-212756134-20-24-USA-RB-0014430

PATIENT
  Sex: Female

DRUGS (3)
  1. MUCINEX [Suspect]
     Active Substance: GUAIFENESIN
     Indication: Nasopharyngitis
     Route: 048
     Dates: start: 20241205
  2. MUCINEX [Suspect]
     Active Substance: GUAIFENESIN
     Indication: Productive cough
  3. MUCINEX [Suspect]
     Active Substance: GUAIFENESIN
     Indication: Sinusitis

REACTIONS (1)
  - Intentional overdose [Unknown]
